FAERS Safety Report 4421173-0 (Version None)
Quarter: 2004Q3

REPORT INFORMATION
  Report Type: 
  Country: None (occurrence: None)
  Receive Date: 20040708
  Receipt Date: 20040318
  Transmission Date: 20050211
  Serious: Yes (Hospitalization)
  Sender: FDA-Public Use
  Company Number: US069807

PATIENT
  Age: 56 Year
  Sex: Male
  Weight: 115.8 kg

DRUGS (2)
  1. KINERET [Suspect]
     Indication: RHEUMATOID ARTHRITIS
     Dosage: 100 MG, 1 IN 1 DAYS, SC
     Route: 058
     Dates: start: 20020602
  2. ANTIHYPERTENSIVES [Concomitant]

REACTIONS (1)
  - CELLULITIS STAPHYLOCOCCAL [None]
